FAERS Safety Report 4270691-7 (Version None)
Quarter: 2004Q1

REPORT INFORMATION
  Report Type: 
  Country: None (occurrence: None)
  Receive Date: 20040113
  Receipt Date: 20040113
  Transmission Date: 20041129
  Serious: Yes (Death)
  Sender: FDA-Public Use
  Company Number: None

PATIENT
  Age: 71 Year
  Sex: Male
  Weight: 70.3075 kg

DRUGS (4)
  1. NIPENT [Suspect]
     Indication: CHRONIC LYMPHOCYTIC LEUKAEMIA
     Dosage: 8 MG (Q 21 DAYS)
     Dates: start: 20030115
  2. SUPRAGEN [Suspect]
     Dosage: IV (042)
     Dates: start: 20030205
  3. CYCLOPHOSPHAMIDE [Concomitant]
  4. PENTOSTATIN [Concomitant]

REACTIONS (15)
  - ABASIA [None]
  - ASTHENIA [None]
  - BLOOD LACTATE DEHYDROGENASE INCREASED [None]
  - COUGH [None]
  - DECREASED APPETITE [None]
  - DEHYDRATION [None]
  - DIARRHOEA [None]
  - DRUG TOXICITY [None]
  - FATIGUE [None]
  - HEPATIC FAILURE [None]
  - HYPOTENSION [None]
  - MARKEDLY REDUCED DIETARY INTAKE [None]
  - OEDEMA PERIPHERAL [None]
  - PYREXIA [None]
  - SEPSIS [None]
